FAERS Safety Report 6719162-6 (Version None)
Quarter: 2010Q2

REPORT INFORMATION
  Report Type: 
  Country: None (occurrence: None)
  Receive Date: 20100507
  Receipt Date: 20100426
  Transmission Date: 20101027
  Serious: Yes (Other)
  Sender: FDA-Public Use
  Company Number: 1-22396110

PATIENT

DRUGS (2)
  1. MEDROXYPROGESTERONE [Suspect]
     Indication: MENOPAUSAL SYMPTOMS
     Dosage: ORAL/MID 1980'S
     Route: 048
     Dates: end: 19940101
  2. PREMARIN [Suspect]
     Indication: MENOPAUSAL SYMPTOMS
     Dosage: ORAL/MID 1980'S
     Route: 048
     Dates: end: 19940101

REACTIONS (8)
  - ANXIETY [None]
  - BREAST CANCER [None]
  - EMOTIONAL DISORDER [None]
  - MENTAL DISORDER [None]
  - OESTROGEN RECEPTOR ASSAY POSITIVE [None]
  - PAIN [None]
  - PROGESTERONE RECEPTOR ASSAY POSITIVE [None]
  - UNEVALUABLE EVENT [None]
